FAERS Safety Report 10566848 (Version 5)
Quarter: 2015Q1

REPORT INFORMATION
  Report Type: Report from Study
  Country: DE (occurrence: DE)
  Receive Date: 20141105
  Receipt Date: 20150127
  Transmission Date: 20150720
  Serious: Yes (Hospitalization)
  Sender: FDA-Public Use
  Company Number: DE-BAYER-2014-162120

PATIENT
  Age: 73 Year
  Sex: Male
  Weight: 79 kg

DRUGS (17)
  1. SORAFENIB (RAF KINASE INHIBITOR) [Suspect]
     Active Substance: SORAFENIB
     Indication: HEPATOCELLULAR CARCINOMA
     Dosage: DAILY DOSE 800 MG
     Route: 048
     Dates: start: 20141205
  2. YTTRIUM (90 Y) [Suspect]
     Active Substance: YTTRIUM Y-90
     Dosage: 0.65 GBQ, ONCE
     Route: 013
     Dates: start: 20140917, end: 20140917
  3. PANTOPRAZOLE [Concomitant]
     Active Substance: PANTOPRAZOLE SODIUM
     Indication: GASTROOESOPHAGEAL REFLUX DISEASE
     Dosage: TOTAL DAILY DOSE 40 MG
     Route: 048
  4. JODID [Concomitant]
     Active Substance: IODINE
     Indication: PRODUCT USED FOR UNKNOWN INDICATION
     Dosage: TOTAL DAILY DOSE 100 MG
     Route: 048
  5. PRIMOVIST [Suspect]
     Active Substance: GADOXETATE DISODIUM
     Dosage: 0.75 ML (75 MG)
     Route: 042
     Dates: start: 20140829, end: 20140829
  6. URSOFALK [Concomitant]
     Active Substance: URSODIOL
     Indication: HEPATOTOXICITY
     Dosage: TOTAL DAILY DOSE 250 MG
     Route: 048
  7. PREDNISOLON [Concomitant]
     Active Substance: PREDNISOLONE
     Indication: RHEUMATOID ARTHRITIS
     Dosage: TOTAL DAILY DOSE 5 MG
     Route: 048
  8. SPIRIVA [Concomitant]
     Active Substance: TIOTROPIUM BROMIDE MONOHYDRATE
     Indication: CHRONIC OBSTRUCTIVE PULMONARY DISEASE
     Dosage: TOTAL DAILY DOSE 18 MCG
     Route: 048
  9. YTTRIUM (90 Y) [Suspect]
     Active Substance: YTTRIUM Y-90
     Dosage: 1.34 GBQ
     Route: 013
     Dates: start: 20141021, end: 20141021
  10. RAMIPRIL. [Concomitant]
     Active Substance: RAMIPRIL
     Indication: HYPERTENSION
     Dosage: UNK
     Route: 048
  11. SIMVASTATIN. [Concomitant]
     Active Substance: SIMVASTATIN
     Indication: HYPERLIPIDAEMIA
     Dosage: TOTAL DAILY DOSE 20 MG
     Route: 048
  12. VIANI [Concomitant]
     Active Substance: FLUTICASONE PROPIONATE\SALMETEROL XINAFOATE
     Indication: CHRONIC OBSTRUCTIVE PULMONARY DISEASE
     Dosage: 1-01 50/250
  13. SORAFENIB (RAF KINASE INHIBITOR) [Suspect]
     Active Substance: SORAFENIB
     Indication: HEPATOCELLULAR CARCINOMA
     Dosage: 200 MG, BID
     Route: 048
     Dates: start: 20141027, end: 20141030
  14. BISOPROLOL [Concomitant]
     Active Substance: BISOPROLOL
     Indication: HYPERTENSION
     Dosage: TOTAL DAILY DOSE 10 MG
  15. ASPIRIN. [Concomitant]
     Active Substance: ASPIRIN
     Indication: ARTERIAL STENOSIS
     Dosage: TOTAL DAILY DOSE 100 MG
     Route: 048
  16. SORAFENIB (RAF KINASE INHIBITOR) [Suspect]
     Active Substance: SORAFENIB
     Indication: HEPATOCELLULAR CARCINOMA
     Dosage: UNK
     Route: 048
     Dates: start: 20141107
  17. ACTOS [Concomitant]
     Active Substance: PIOGLITAZONE HYDROCHLORIDE
     Indication: DIABETES MELLITUS
     Dosage: 30 MG
     Route: 048

REACTIONS (4)
  - Hepatic cirrhosis [Recovered/Resolved]
  - Ascites [Not Recovered/Not Resolved]
  - Hepatic cirrhosis [Not Recovered/Not Resolved]
  - Dyspnoea [Not Recovered/Not Resolved]

NARRATIVE: CASE EVENT DATE: 20141031
